FAERS Safety Report 6880946-5 (Version None)
Quarter: 2010Q2

REPORT INFORMATION
  Report Type: 
  Country: None (occurrence: None)
  Receive Date: 20100630
  Receipt Date: 20100317
  Transmission Date: 20101027
  Serious: No
  Sender: FDA-Public Use
  Company Number: 1000012539

PATIENT
  Sex: Female

DRUGS (2)
  1. BYSTOLIC [Suspect]
     Dosage: ORAL
     Route: 048
  2. NEURONTIN [Suspect]
     Dosage: ORAL
     Route: 048

REACTIONS (1)
  - PHOTOSENSITIVITY REACTION [None]
